FAERS Safety Report 8981471 (Version 1)
Quarter: 2012Q4

REPORT INFORMATION
  Report Type: 
  Country: US (occurrence: US)
  Receive Date: 20121221
  Receipt Date: 20121221
  Transmission Date: 20130627
  Serious: Yes (Hospitalization)
  Sender: FDA-Public Use
  Company Number: US-BAYER-2012-129124

PATIENT
  Age: 36 Year
  Sex: Female

DRUGS (8)
  1. YASMIN [Suspect]
  2. OCELLA [Suspect]
     Indication: ACNE
  3. SYNTHROID [Concomitant]
  4. NEXIUM [Concomitant]
  5. ZYRTEC [Concomitant]
  6. AUGMENTIN [Concomitant]
  7. TAZORAC [Concomitant]
  8. BACTRIM [Concomitant]

REACTIONS (1)
  - Pulmonary embolism [None]
